FAERS Safety Report 6443103-2 (Version None)
Quarter: 2009Q4

REPORT INFORMATION
  Report Type: 
  Country: None (occurrence: None)
  Receive Date: 20091112
  Receipt Date: 20091028
  Transmission Date: 20100525
  Serious: Yes (Disabling, Other)
  Sender: FDA-Public Use
  Company Number: AUR-APL-2009-01114

PATIENT
  Age: 41 Year
  Sex: Female

DRUGS (6)
  1. MIRTAZAPINE [Suspect]
     Indication: DEPRESSION
     Dosage: 30MG - DAILY
     Dates: start: 20070724
  2. PREZISTA [Suspect]
     Indication: HIV INFECTION
     Dosage: 600MG - BID - ORAL
     Route: 048
     Dates: start: 20070227, end: 20080219
  3. RITONAVIR [Suspect]
     Indication: HIV INFECTION
     Dosage: 100MG - BID
     Dates: start: 20070227
  4. METHADONE HCL [Concomitant]
  5. TMC125        (ETRAVIRINE) [Concomitant]
  6. TRUVADA [Concomitant]

REACTIONS (3)
  - DRUG INTERACTION [None]
  - LIPOHYPERTROPHY [None]
  - WEIGHT INCREASED [None]
